FAERS Safety Report 8178342-6 (Version None)
Quarter: 2012Q1

REPORT INFORMATION
  Report Type: 
  Country: None (occurrence: None)
  Receive Date: 20120301
  Receipt Date: 20120223
  Transmission Date: 20120608
  Serious: Yes (Other)
  Sender: FDA-Public Use
  Company Number: US-ABBOTT-12P-163-0908560-00

PATIENT
  Sex: Male

DRUGS (1)
  1. SYNTHROID [Suspect]
     Indication: HYPOTHYROIDISM
     Dosage: RECENTLY INCREASED TO 0.125MG
     Route: 048
     Dates: start: 20090901

REACTIONS (2)
  - MUSCULAR WEAKNESS [None]
  - PANCREATIC CARCINOMA [None]
